FAERS Safety Report 20415949 (Version 1)
Quarter: 2022Q1

REPORT INFORMATION
  Report Type: Spontaneous
  Country: SE (occurrence: SE)
  Receive Date: 20220202
  Receipt Date: 20220202
  Transmission Date: 20220423
  Serious: Yes (Hospitalization)
  Sender: FDA-Public Use
  Company Number: None

PATIENT
  Age: 64 Year
  Sex: Male
  Weight: 98 kg

DRUGS (8)
  1. JARDIANCE [Suspect]
     Active Substance: EMPAGLIFLOZIN
     Indication: Type 2 diabetes mellitus
     Route: 048
     Dates: start: 20200121, end: 20220117
  2. Metformin Accord 500 mg Filmdragerad tablett [Concomitant]
     Indication: Product used for unknown indication
     Route: 048
  3. Enalapril Comp STADA 20 mg/12,5 mg Tablett [Concomitant]
     Indication: Product used for unknown indication
     Route: 048
  4. Amlodipin Bluefish 10 mg Tablett [Concomitant]
     Indication: Product used for unknown indication
     Route: 048
  5. Atorvastatin 1A Farma 80 mg Filmdragerad tablett [Concomitant]
     Indication: Product used for unknown indication
     Route: 048
  6. Fluanxol Depot 100 mg/ml Injektionsv?tska, l?sning [Concomitant]
     Indication: Product used for unknown indication
     Route: 030
  7. Glimepirid Actavis 2 mg Tablett [Concomitant]
     Indication: Product used for unknown indication
     Route: 048
  8. JANUVIA [Concomitant]
     Active Substance: SITAGLIPTIN PHOSPHATE
     Indication: Product used for unknown indication
     Route: 048

REACTIONS (1)
  - Eczema [Not Recovered/Not Resolved]

NARRATIVE: CASE EVENT DATE: 20201130
